FAERS Safety Report 8439501-8 (Version None)
Quarter: 2012Q2

REPORT INFORMATION
  Report Type: 
  Country: None (occurrence: None)
  Receive Date: 20120611
  Receipt Date: 20120611
  Transmission Date: 20120825
  Serious: Yes (Death)
  Sender: FDA-Public Use
  Company Number: None

PATIENT
  Age: 80 Year
  Sex: Male
  Weight: 90.7194 kg

DRUGS (2)
  1. DEPAKOTE [Suspect]
     Indication: DEMENTIA
     Dosage: 1000 MG 3X DAILY
     Dates: start: 20120515, end: 20120524
  2. DEPAKOTE [Suspect]
     Indication: DEMENTIA
     Dosage: 150 MG 3X DAILY
     Dates: start: 20120515, end: 20120524

REACTIONS (4)
  - DROOLING [None]
  - DYSARTHRIA [None]
  - SOMNOLENCE [None]
  - OVERDOSE [None]
